FAERS Safety Report 16439875 (Version 1)
Quarter: 2019Q2

REPORT INFORMATION
  Report Type: Spontaneous
  Country: US (occurrence: US)
  Receive Date: 20190508
  Receipt Date: 20190508
  Transmission Date: 20190711
  Serious: No
  Sender: FDA-Public Use
  Company Number: None

PATIENT
  Age: 61 Year
  Sex: Female
  Weight: 69.4 kg

DRUGS (1)
  1. COSENTYX [Suspect]
     Active Substance: SECUKINUMAB
     Indication: PSORIATIC ARTHROPATHY
     Dosage: INJECT 150MG (1 PEN ) SUBCUTANEOUSLY  AT WEEK 0.1.2.3 \T\ 4   AS DIRECT
     Route: 058
     Dates: start: 201610

REACTIONS (1)
  - Vertigo [None]
